FAERS Safety Report 11796106 (Version 2)
Quarter: 2016Q3

REPORT INFORMATION
  Report Type: Spontaneous
  Country: DE (occurrence: DE)
  Receive Date: 20151203
  Receipt Date: 20160802
  Transmission Date: 20161109
  Serious: No
  Sender: FDA-Public Use
  Company Number: DE-GLENMARK PHARMACEUTICALS INC, USA.-2015GMK014593

PATIENT

DRUGS (2)
  1. PRAMIPEXOLE. [Suspect]
     Active Substance: PRAMIPEXOLE
     Indication: HUNTINGTON^S DISEASE
     Dosage: UNK
  2. SEROQUEL [Concomitant]
     Active Substance: QUETIAPINE FUMARATE
     Indication: HUNTINGTON^S DISEASE
     Dosage: UNK

REACTIONS (1)
  - Off label use [Unknown]
